FAERS Safety Report 9568312 (Version 1)
Quarter: 2013Q3

REPORT INFORMATION
  Report Type: Spontaneous
  Country: US (occurrence: US)
  Receive Date: 20130930
  Receipt Date: 20130930
  Transmission Date: 20140515
  Serious: No
  Sender: FDA-Public Use
  Company Number: US-AMGEN-USASP2013053903

PATIENT
  Age: 27 Year
  Sex: Female
  Weight: 74.83 kg

DRUGS (6)
  1. ENBREL [Suspect]
     Indication: PRODUCT USED FOR UNKNOWN INDICATION
     Dosage: 50 MG, TWICE A WEEK FOR THREE MONTHS
     Route: 058
  2. CLINDAMYCIN [Concomitant]
     Indication: FUNGAL INFECTION
     Dosage: 150 MG, UNK
  3. VITAMIN D                          /00107901/ [Concomitant]
     Dosage: 2000 UNIT, UNK
  4. BENADRYL ALLERGY                   /00000402/ [Concomitant]
     Dosage: 25 MG, UNK
  5. CRANBERRY                          /01512301/ [Concomitant]
     Dosage: UNK
  6. PRENATAL                           /00231801/ [Concomitant]
     Dosage: UNK

REACTIONS (2)
  - Night sweats [Recovered/Resolved]
  - Fungal infection [Unknown]
